FAERS Safety Report 8356008-7 (Version None)
Quarter: 2012Q2

REPORT INFORMATION
  Report Type: 
  Country: None (occurrence: None)
  Receive Date: 20120511
  Receipt Date: 20120511
  Transmission Date: 20120825
  Serious: Yes (Other)
  Sender: FDA-Public Use
  Company Number: None

PATIENT
  Age: 47 Year
  Sex: Male
  Weight: 63.5036 kg

DRUGS (2)
  1. PROHANCE [Suspect]
     Indication: NUCLEAR MAGNETIC RESONANCE IMAGING
     Dates: start: 20120413, end: 20120413
  2. VISIPAQUE [Suspect]
     Indication: COMPUTERISED TOMOGRAM
     Dates: start: 20120406, end: 20120406

REACTIONS (2)
  - BONE PAIN [None]
  - MUSCULOSKELETAL CHEST PAIN [None]
